FAERS Safety Report 5684393-3 (Version None)
Quarter: 2008Q1

REPORT INFORMATION
  Report Type: 
  Country: None (occurrence: None)
  Receive Date: 20080328
  Receipt Date: 20080325
  Transmission Date: 20080703
  Serious: Yes (Hospitalization)
  Sender: FDA-Public Use
  Company Number: FR-AVENTIS-200811097FR

PATIENT
  Age: 76 Year
  Sex: Female

DRUGS (13)
  1. RIFATER [Suspect]
     Route: 048
     Dates: start: 20070701, end: 20071213
  2. SOLU-MEDROL [Suspect]
     Route: 042
  3. ZYLORIC [Suspect]
     Route: 048
     Dates: start: 20070701, end: 20071213
  4. DEXAMBUTOL [Suspect]
     Route: 048
     Dates: start: 20070715, end: 20071213
  5. TENORMIN [Concomitant]
     Route: 048
     Dates: start: 20070715, end: 20071213
  6. NEXIUM [Concomitant]
     Dates: end: 20071213
  7. ATARAX                             /00058402/ [Concomitant]
     Dates: end: 20071213
  8. RIVOTRIL [Concomitant]
     Dates: end: 20071213
  9. IMOVANE [Concomitant]
     Route: 048
     Dates: end: 20071213
  10. FOSAMAX [Concomitant]
     Dates: end: 20071213
  11. VITAMINE D3 [Concomitant]
     Dates: end: 20071213
  12. TRANSIPEG                          /00754501/ [Concomitant]
     Dates: end: 20071213
  13. VOGALENE [Concomitant]
     Dates: end: 20071213

REACTIONS (2)
  - HEPATOCELLULAR INJURY [None]
  - OEDEMATOUS PANCREATITIS [None]
